FAERS Safety Report 7169783-4 (Version None)
Quarter: 2010Q4

REPORT INFORMATION
  Report Type: 
  Country: None (occurrence: None)
  Receive Date: 20101217
  Receipt Date: 20100715
  Transmission Date: 20110411
  Serious: No
  Sender: FDA-Public Use
  Company Number: A0870653A

PATIENT
  Age: 63 Year
  Sex: Male

DRUGS (11)
  1. SORIATANE [Suspect]
     Indication: PROPHYLAXIS
     Dosage: 25MG PER DAY
     Route: 048
     Dates: start: 20100603
  2. IMMUNOSUPPRESSIVE [Concomitant]
  3. BLOOD PRESSURE MEDICATION [Concomitant]
  4. LIPITOR [Concomitant]
  5. DIOVAN [Concomitant]
  6. PROGRAF [Concomitant]
  7. VERAPAMIL [Concomitant]
  8. FLOMAX [Concomitant]
  9. CIPRO [Concomitant]
     Indication: PROPHYLAXIS
  10. KEFLEX [Concomitant]
  11. ALCOHOL [Concomitant]
     Dates: start: 20100709

REACTIONS (1)
  - DYSURIA [None]
